FAERS Safety Report 14955867 (Version 1)
Quarter: 2018Q2

REPORT INFORMATION
  Report Type: Spontaneous
  Country: FR (occurrence: FR)
  Receive Date: 20180531
  Receipt Date: 20180531
  Transmission Date: 20180711
  Serious: Yes (Other)
  Sender: FDA-Public Use
  Company Number: FR-AXELLIA-001696

PATIENT
  Age: 87 Year
  Sex: Female
  Weight: 56 kg

DRUGS (15)
  1. ZAMUDOL [Concomitant]
     Active Substance: TRAMADOL HYDROCHLORIDE
     Route: 048
  2. LASILIX [Concomitant]
     Active Substance: FUROSEMIDE
     Route: 048
  3. DIPROSONE [Concomitant]
     Active Substance: BETAMETHASONE DIPROPIONATE
     Dosage: STRENGTH 0.05 PERCENT
     Route: 061
  4. ECONAZOLE ARROW [Concomitant]
     Dosage: STRENGTH 1 PERCENT
     Route: 061
  5. PANTOPRAZOLE [Concomitant]
     Active Substance: PANTOPRAZOLE
     Route: 048
  6. PERINDOPRIL ARROW [Concomitant]
     Active Substance: PERINDOPRIL
     Dosage: STRENGTH 2 MG TABLET
     Route: 048
  7. OFLOXACIN. [Suspect]
     Active Substance: OFLOXACIN
     Indication: OSTEOMYELITIS
     Route: 048
     Dates: start: 20180225, end: 20180228
  8. AXEPIM [Suspect]
     Active Substance: CEFEPIME HYDROCHLORIDE
     Indication: OSTEOMYELITIS
     Route: 041
     Dates: start: 20180225, end: 20180228
  9. AMLODIPINE [Concomitant]
     Active Substance: AMLODIPINE BESYLATE
     Dosage: STRENGTH 5 MG TABLET
     Route: 048
  10. INNOHEP [Concomitant]
     Active Substance: TINZAPARIN SODIUM
     Route: 058
  11. DAPTOMYCIN. [Suspect]
     Active Substance: DAPTOMYCIN
     Indication: OSTEOMYELITIS
     Route: 041
     Dates: start: 20180225, end: 20180228
  12. DOLIPRANE [Concomitant]
     Active Substance: ACETAMINOPHEN
     Route: 048
  13. OROZAMUDOL [Concomitant]
     Active Substance: TRAMADOL
     Route: 048
  14. GAVISCON [Concomitant]
     Active Substance: ALUMINUM HYDROXIDE\MAGNESIUM CARBONATE
     Route: 048
  15. PRIMPERAN [Concomitant]
     Active Substance: METOCLOPRAMIDE HYDROCHLORIDE
     Route: 040

REACTIONS (1)
  - Confusional state [Recovered/Resolved]

NARRATIVE: CASE EVENT DATE: 20180228
